FAERS Safety Report 16919726 (Version 1)
Quarter: 2019Q4

REPORT INFORMATION
  Report Type: Spontaneous
  Country: US (occurrence: US)
  Receive Date: 20191015
  Receipt Date: 20191015
  Transmission Date: 20200122
  Serious: No
  Sender: FDA-Public Use
  Company Number: US-PERRIGO-18US011675

PATIENT
  Age: 84 Year
  Sex: Female
  Weight: 49.89 kg

DRUGS (2)
  1. ARMOUR THYROID [Concomitant]
     Active Substance: THYROID, PORCINE
     Indication: HYPOTHYROIDISM
     Dosage: UNK
     Route: 065
  2. NICOTINE POLACRILEX [Suspect]
     Active Substance: NICOTINE
     Indication: TREMOR
     Dosage: 4 MG, SINGLE
     Route: 002
     Dates: start: 201810, end: 201810

REACTIONS (4)
  - Off label use [Recovered/Resolved]
  - Abdominal discomfort [Recovered/Resolved]
  - Hiccups [Recovered/Resolved]
  - Dizziness [Recovered/Resolved]

NARRATIVE: CASE EVENT DATE: 201810
